FAERS Safety Report 25768729 (Version 1)
Quarter: 2025Q3

REPORT INFORMATION
  Report Type: Spontaneous
  Country: EU (occurrence: EU)
  Receive Date: 20250905
  Receipt Date: 20250905
  Transmission Date: 20251021
  Serious: Yes (Life-Threatening, Hospitalization, Other)
  Sender: MERCK SHARP & DOHME LLC
  Company Number: None

PATIENT
  Age: 50 Year
  Sex: Female

DRUGS (1)
  1. KEYTRUDA [Suspect]
     Active Substance: PEMBROLIZUMAB
     Indication: Superficial spreading melanoma stage III
     Route: 042
     Dates: start: 20250618, end: 20250618

REACTIONS (10)
  - Cardiogenic shock [Recovered/Resolved with Sequelae]
  - Atrial fibrillation [Recovering/Resolving]
  - Autoimmune pancreatitis [Recovered/Resolved with Sequelae]
  - Diabetic ketoacidosis [Recovered/Resolved with Sequelae]
  - Thrombosis [Recovered/Resolved]
  - Autoimmune myositis [Recovering/Resolving]
  - Myocarditis [Recovered/Resolved with Sequelae]
  - Immune-mediated pancytopenia [Recovering/Resolving]
  - Dermatitis [Recovering/Resolving]
  - Autoimmune thyroiditis [Not Recovered/Not Resolved]

NARRATIVE: CASE EVENT DATE: 20250706
